FAERS Safety Report 10158178 (Version 3)
Quarter: 2014Q2

REPORT INFORMATION
  Report Type: Spontaneous
  Country: JP (occurrence: JP)
  Receive Date: 20140507
  Receipt Date: 20140602
  Transmission Date: 20141212
  Serious: Yes (Hospitalization)
  Sender: FDA-Public Use
  Company Number: JP-TEVA-473529USA

PATIENT
  Age: 57 Year
  Sex: Male

DRUGS (13)
  1. BENDAMUSTINE [Suspect]
     Indication: MANTLE CELL LYMPHOMA
     Dosage: CYCLIC
     Route: 042
     Dates: start: 20131007, end: 20131008
  2. BENDAMUSTINE [Suspect]
     Indication: MANTLE CELL LYMPHOMA
     Dosage: REGIMEN #2
     Route: 042
     Dates: start: 20131105, end: 20131106
  3. BENDAMUSTINE [Suspect]
     Indication: MANTLE CELL LYMPHOMA
     Dosage: REGIMEN #3
     Dates: start: 20131210, end: 20131211
  4. BENDAMUSTINE [Suspect]
     Indication: MANTLE CELL LYMPHOMA
     Dosage: REGIMEN #4
     Route: 042
     Dates: start: 20140122, end: 20140123
  5. BENDAMUSTINE [Suspect]
     Indication: MANTLE CELL LYMPHOMA
     Dosage: REGIMEN #5
     Route: 042
     Dates: start: 20140303, end: 20140304
  6. BENDAMUSTINE [Suspect]
     Indication: MANTLE CELL LYMPHOMA
     Dosage: REGIMEN #6
     Route: 042
     Dates: start: 20140401, end: 20140402
  7. LANSOPRAZOLE [Concomitant]
     Dates: start: 20131004, end: 20140110
  8. PREDNISOLONE [Concomitant]
     Dates: start: 20131004
  9. LFAMETHOXAZOLE W/TRIMETHOPRIM [Concomitant]
  10. ACICLOVIR [Concomitant]
     Dates: start: 20131005, end: 20140110
  11. RITUXIMAB [Concomitant]
     Dates: start: 20131021
  12. CARVEDILOL [Concomitant]
  13. SULFAMETHOXAZOLE W/TRIMETHOPRIM [Concomitant]
     Dates: start: 20131005, end: 20140110

REACTIONS (2)
  - Pancytopenia [Recovered/Resolved]
  - Eosinophil count increased [Recovering/Resolving]
